FAERS Safety Report 24662460 (Version 1)
Quarter: 2024Q4

REPORT INFORMATION
  Report Type: Spontaneous
  Country: US (occurrence: US)
  Receive Date: 20241125
  Receipt Date: 20241125
  Transmission Date: 20250115
  Serious: No
  Sender: ROCHE
  Company Number: US-ROCHE-10000139094

PATIENT
  Sex: Female

DRUGS (10)
  1. ACTEMRA [Suspect]
     Active Substance: TOCILIZUMAB
     Indication: Systemic scleroderma
     Route: 058
  2. ACTEMRA [Suspect]
     Active Substance: TOCILIZUMAB
  3. CELLCEPT [Concomitant]
     Active Substance: MYCOPHENOLATE MOFETIL
     Route: 048
  4. AMLODIPINE B SUS [Concomitant]
     Dosage: DOSE : 1 MG/ML
  5. LOSARTAN POT POW [Concomitant]
  6. METOPROLOL [Concomitant]
     Active Substance: METOPROLOL
  7. PEPCID [Concomitant]
     Active Substance: FAMOTIDINE
  8. PROCRIT [Concomitant]
     Active Substance: ERYTHROPOIETIN
     Dosage: SOLUTION??DOSE 4000 UNIT /ML
  9. SINGULAIR CHE [Concomitant]
  10. ZEMPLAR [Concomitant]
     Active Substance: PARICALCITOL

REACTIONS (3)
  - Low lung compliance [Not Recovered/Not Resolved]
  - Dyspnoea [Not Recovered/Not Resolved]
  - Off label use [Unknown]
